FAERS Safety Report 10238293 (Version 1)
Quarter: 2014Q2

REPORT INFORMATION
  Report Type: Spontaneous
  Country: US (occurrence: None)
  Receive Date: 20140613
  Receipt Date: 20140613
  Transmission Date: 20141212
  Serious: Yes (Hospitalization)
  Sender: FDA-Public Use
  Company Number: None

PATIENT
  Age: 65 Year
  Sex: Male
  Weight: 114.2 kg

DRUGS (1)
  1. MEXILETINE [Suspect]
     Route: 048
     Dates: start: 20140414, end: 20140430

REACTIONS (5)
  - Dyspnoea [None]
  - Dizziness [None]
  - Decreased appetite [None]
  - Flushing [None]
  - Asthenia [None]
